FAERS Safety Report 8365953-8 (Version None)
Quarter: 2012Q2

REPORT INFORMATION
  Report Type: 
  Country: None (occurrence: None)
  Receive Date: 20120517
  Receipt Date: 20120511
  Transmission Date: 20120825
  Serious: Yes (Other)
  Sender: FDA-Public Use
  Company Number: US-PFIZER INC-2012042248

PATIENT
  Sex: Female

DRUGS (8)
  1. PROMETHAZINE [Concomitant]
     Indication: HEADACHE
     Dosage: UNK
     Dates: start: 20070101, end: 20110101
  2. PROMETHAZINE [Concomitant]
     Indication: MIGRAINE
  3. PROMETHAZINE [Concomitant]
     Indication: NAUSEA
  4. CHANTIX [Suspect]
     Indication: SMOKING CESSATION THERAPY
     Dosage: 0.5 MG, STARTER PACK
     Route: 048
     Dates: start: 20071120, end: 20081220
  5. CHANTIX [Suspect]
     Dosage: 0.5MG STARTER PACK AND 1 MG, CONTINUING MONTH PACK
     Route: 048
     Dates: start: 20090831, end: 20090930
  6. LORTAB [Concomitant]
     Indication: ARTHRALGIA
  7. LORTAB [Concomitant]
     Indication: MUSCULOSKELETAL PAIN
  8. LORTAB [Concomitant]
     Indication: BACK PAIN
     Dosage: UNK
     Dates: start: 20070101

REACTIONS (1)
  - ANXIETY DISORDER [None]
